FAERS Safety Report 8764913 (Version 4)
Quarter: 2013Q1

REPORT INFORMATION
  Report Type: Report from Study
  Country: US (occurrence: US)
  Receive Date: 20120902
  Receipt Date: 20130126
  Transmission Date: 20140127
  Serious: Yes (Life-Threatening)
  Sender: FDA-Public Use
  Company Number: US-009507513-1208USA010004

PATIENT
  Age: 71 Year
  Sex: Female
  Weight: 47.17 kg

DRUGS (6)
  1. SAPHRIS [Suspect]
     Indication: BIPOLAR I DISORDER
     Dosage: 10 MG, QD
     Route: 048
     Dates: start: 20120711, end: 20120726
  2. SAPHRIS [Suspect]
     Dosage: 10 MG, BID
     Route: 048
     Dates: start: 20120726, end: 20120821
  3. PREDNISONE [Concomitant]
     Dosage: 10 MG, QD
  4. SIMVASTATIN [Concomitant]
     Dosage: 20 MG, QD
  5. ACTONEL [Concomitant]
     Dosage: 150 MG, QD
  6. XANAX [Concomitant]
     Dosage: UNK, PRN

REACTIONS (1)
  - Suicidal ideation [Unknown]
